FAERS Safety Report 6669728-7 (Version None)
Quarter: 2010Q2

REPORT INFORMATION
  Report Type: 
  Country: None (occurrence: None)
  Receive Date: 20100406
  Receipt Date: 20100329
  Transmission Date: 20101027
  Serious: Yes (Hospitalization, Other)
  Sender: FDA-Public Use
  Company Number: CA-ABBOTT-10P-028-0620143-00

PATIENT
  Sex: Female
  Weight: 118.04 kg

DRUGS (14)
  1. HUMIRA [Suspect]
     Indication: RHEUMATOID ARTHRITIS
     Route: 058
     Dates: start: 20090215, end: 20100301
  2. METHOTREXATE [Concomitant]
     Indication: DRUG USE FOR UNKNOWN INDICATION
  3. FOLIC ACID [Concomitant]
     Indication: DRUG USE FOR UNKNOWN INDICATION
  4. HYDROXYCHLOROQUINE SULFATE [Concomitant]
     Indication: DRUG USE FOR UNKNOWN INDICATION
  5. SYNTHROID [Concomitant]
     Indication: DRUG USE FOR UNKNOWN INDICATION
  6. DIOVAN 106/HCT [Concomitant]
     Indication: DRUG USE FOR UNKNOWN INDICATION
  7. CALCIUM [Concomitant]
     Indication: DRUG USE FOR UNKNOWN INDICATION
  8. RANITIDINE [Concomitant]
     Indication: DRUG USE FOR UNKNOWN INDICATION
  9. VITAMIN B-12 [Concomitant]
     Indication: DRUG USE FOR UNKNOWN INDICATION
     Route: 050
  10. B12 EXTENDED RELEASE PILL [Concomitant]
     Indication: DRUG USE FOR UNKNOWN INDICATION
  11. VIT D [Concomitant]
     Indication: DRUG USE FOR UNKNOWN INDICATION
  12. EFFEXOR [Concomitant]
     Indication: DRUG USE FOR UNKNOWN INDICATION
  13. ARIMIDEX [Concomitant]
     Indication: DRUG USE FOR UNKNOWN INDICATION
  14. DUO TRAV EYE DROP LEFT EYE [Concomitant]
     Indication: DRUG USE FOR UNKNOWN INDICATION

REACTIONS (2)
  - OSTEOARTHRITIS [None]
  - RHEUMATOID ARTHRITIS [None]
